FAERS Safety Report 11926998 (Version 1)
Quarter: 2016Q1

REPORT INFORMATION
  Report Type: Spontaneous
  Country: US (occurrence: None)
  Receive Date: 20160115
  Receipt Date: 20160115
  Transmission Date: 20160526
  Serious: No
  Sender: FDA-Public Use
  Company Number: None

PATIENT
  Age: 54 Year
  Sex: Male

DRUGS (4)
  1. INVOKANA [Suspect]
     Active Substance: CANAGLIFLOZIN
     Indication: HYPERGLYCAEMIA
     Dosage: 1 PILL ONCE DAILY TAKEN BY MOUTH
     Route: 048
     Dates: start: 20150901, end: 20151221
  2. JANUVIA [Concomitant]
     Active Substance: SITAGLIPTIN PHOSPHATE
  3. GLIMPIRIDE [Concomitant]
     Active Substance: GLIMEPIRIDE
  4. DIOVAN [Concomitant]
     Active Substance: VALSARTAN

REACTIONS (1)
  - Renal pain [None]

NARRATIVE: CASE EVENT DATE: 20151221
